FAERS Safety Report 10058562 (Version 2)
Quarter: 2014Q2

REPORT INFORMATION
  Report Type: Spontaneous
  Country: US (occurrence: US)
  Receive Date: 20140404
  Receipt Date: 20140513
  Transmission Date: 20141212
  Serious: Yes (Other)
  Sender: FDA-Public Use
  Company Number: US-ASTELLAS-2014US003356

PATIENT
  Age: 86 Year
  Sex: Male

DRUGS (2)
  1. VESICARE [Suspect]
     Indication: URINARY INCONTINENCE
     Route: 048
     Dates: start: 20131115
  2. VESICARE [Suspect]
     Route: 048

REACTIONS (1)
  - Blood pressure increased [Recovered/Resolved]
